FAERS Safety Report 25382751 (Version 1)
Quarter: 2025Q2

REPORT INFORMATION
  Report Type: Spontaneous
  Country: CN (occurrence: CN)
  Receive Date: 20250602
  Receipt Date: 20250602
  Transmission Date: 20250717
  Serious: Yes (Hospitalization, Other)
  Sender: Haleon PLC
  Company Number: CN-HALEON-2244772

PATIENT
  Age: 56 Year
  Sex: Male
  Weight: 65 kg

DRUGS (2)
  1. DICLOFENAC SODIUM [Suspect]
     Active Substance: DICLOFENAC SODIUM
     Indication: Gout
     Route: 048
     Dates: end: 20250507
  2. DICLOFENAC SODIUM [Suspect]
     Active Substance: DICLOFENAC SODIUM
     Indication: Arthralgia
     Route: 048
     Dates: start: 20250507

REACTIONS (12)
  - Acute kidney injury [Recovering/Resolving]
  - Chest discomfort [Recovering/Resolving]
  - Mucosal membrane hyperplasia [Recovering/Resolving]
  - Nausea [Recovering/Resolving]
  - Vomiting [Recovering/Resolving]
  - Overdose [Unknown]
  - Gastric ulcer [Recovering/Resolving]
  - Chronic gastritis [Recovering/Resolving]
  - Urine output decreased [Recovering/Resolving]
  - Oedema [Recovering/Resolving]
  - Erosive oesophagitis [Recovering/Resolving]
  - Oesophageal ulcer [Recovering/Resolving]

NARRATIVE: CASE EVENT DATE: 20250519
